FAERS Safety Report 6473366-9 (Version None)
Quarter: 2009Q4

REPORT INFORMATION
  Report Type: 
  Country: None (occurrence: None)
  Receive Date: 20091204
  Receipt Date: 20091124
  Transmission Date: 20100525
  Serious: Yes (Other)
  Sender: FDA-Public Use
  Company Number: FI-B.I. PHARMACEUTICALS,INC./RIDGEFIELD-2009-SW-00246SF

PATIENT
  Sex: Male

DRUGS (12)
  1. SIFROL TAB [Suspect]
     Indication: PARKINSON'S DISEASE
     Dosage: 0.54 MG
     Dates: start: 20020703, end: 20020908
  2. SIFROL TAB [Suspect]
     Dosage: 1.05 MG
     Dates: start: 20020909, end: 20020929
  3. SIFROL TAB [Suspect]
     Dosage: 0.72 MG
     Dates: start: 20020930, end: 20030423
  4. SIFROL TAB [Suspect]
     Dosage: 1.05 MG
     Dates: start: 20030424, end: 20060206
  5. SIFROL TAB [Suspect]
     Dosage: 2.1 MG
     Dates: start: 20060207, end: 20070920
  6. SIFROL TAB [Suspect]
     Dosage: 0.88 MG
     Dates: start: 20070921, end: 20080805
  7. ELDEPRYL [Concomitant]
     Indication: PARKINSON'S DISEASE
     Dosage: 10 MG
     Dates: start: 20020528, end: 20030501
  8. ELDEPRYL [Concomitant]
     Dosage: 5 MG
     Dates: start: 20041230, end: 20070223
  9. OPAMOX [Concomitant]
     Indication: SEDATIVE THERAPY
     Dosage: 1/2-1 *1 WHEN NEEDED
     Dates: start: 20041201
  10. AZILECT [Concomitant]
     Indication: PARKINSON'S DISEASE
     Dosage: 1 MG
     Dates: start: 20070223
  11. STALEVO 100 [Concomitant]
     Indication: PARKINSON'S DISEASE
     Dosage: 50/12.5/200 MG 1*3
     Dates: start: 20070612
  12. STALEVO 100 [Concomitant]
     Dosage: 100/25

REACTIONS (12)
  - AGITATION [None]
  - FEAR [None]
  - HYPERHIDROSIS [None]
  - INSOMNIA [None]
  - JOB DISSATISFACTION [None]
  - MANIA [None]
  - NEGATIVE THOUGHTS [None]
  - OBSESSIVE-COMPULSIVE DISORDER [None]
  - PARKINSON'S DISEASE [None]
  - PATHOLOGICAL GAMBLING [None]
  - RESTLESSNESS [None]
  - TREMOR [None]
